FAERS Safety Report 8931644 (Version 2)
Quarter: 2013Q1

REPORT INFORMATION
  Report Type: Report from Study
  Country: US (occurrence: US)
  Receive Date: 20121128
  Receipt Date: 20130104
  Transmission Date: 20140127
  Serious: Yes (Life-Threatening, Hospitalization, Other)
  Sender: FDA-Public Use
  Company Number: US-ACTELION-A-US2012-74906

PATIENT
  Age: 71 Year
  Sex: Female

DRUGS (4)
  1. TRACLEER [Suspect]
     Indication: PULMONARY ARTERIAL HYPERTENSION
     Dosage: 125 MG, BID
     Route: 048
     Dates: start: 20120930, end: 20121006
  2. TRACLEER [Suspect]
     Dosage: 62.5 MG, BID
     Route: 048
     Dates: start: 20120827
  3. PLAVIX [Concomitant]
  4. COUMADIN [Concomitant]

REACTIONS (2)
  - Myocardial infarction [Recovered/Resolved]
  - Cardiac operation [Unknown]
